FAERS Safety Report 10871236 (Version 1)
Quarter: 2015Q1

REPORT INFORMATION
  Report Type: Spontaneous
  Country: US (occurrence: US)
  Receive Date: 20150226
  Receipt Date: 20150226
  Transmission Date: 20150721
  Serious: Yes (Death, Life-Threatening, Hospitalization)
  Sender: FDA-Public Use
  Company Number: US-LUNDBECK-DKLU1109003

PATIENT
  Age: 30 Year

DRUGS (1)
  1. ONFI [Suspect]
     Active Substance: CLOBAZAM
     Indication: EPILEPSY
     Route: 065
     Dates: start: 201201

REACTIONS (2)
  - Respiratory arrest [Fatal]
  - Seizure [Unknown]

NARRATIVE: CASE EVENT DATE: 20150129
